FAERS Safety Report 16162446 (Version 1)
Quarter: 2019Q2

REPORT INFORMATION
  Report Type: Spontaneous
  Country: US (occurrence: US)
  Receive Date: 20190404
  Receipt Date: 20190404
  Transmission Date: 20190711
  Serious: No
  Sender: FDA-Public Use
  Company Number: None

PATIENT
  Age: 16 Year
  Sex: Male
  Weight: 54 kg

DRUGS (2)
  1. ADDERALL [Concomitant]
     Active Substance: AMPHETAMINE ASPARTATE\AMPHETAMINE SULFATE\DEXTROAMPHETAMINE SACCHARATE\DEXTROAMPHETAMINE SULFATE
  2. AL00378 ALBA COOL SPORT SUNSCREEN SPF50 [Suspect]
     Active Substance: AVOBENZONE\HOMOSALATE\OCTISALATE\OCTOCRYLENE
     Indication: PROPHYLAXIS AGAINST SOLAR RADIATION
     Dosage: 171 SPRAYS; TOPICAL
     Route: 061
     Dates: start: 20190324, end: 20190324

REACTIONS (4)
  - Thermal burn [None]
  - Blister [None]
  - Urticaria [None]
  - Skin discolouration [None]

NARRATIVE: CASE EVENT DATE: 20190324
